FAERS Safety Report 4469431-8 (Version None)
Quarter: 2004Q4

REPORT INFORMATION
  Report Type: 
  Country: None (occurrence: None)
  Receive Date: 20041005
  Receipt Date: 20041005
  Transmission Date: 20050328
  Serious: Yes (Hospitalization)
  Sender: FDA-Public Use
  Company Number: None

PATIENT
  Sex: Male

DRUGS (14)
  1. WARFARIN SODIUM [Suspect]
     Indication: ATRIAL FIBRILLATION
     Dosage: 5 MG  DAILY  ORAL
     Route: 048
     Dates: start: 20040513, end: 20040515
  2. LOVENOX [Concomitant]
  3. METRONIDAZOLE [Concomitant]
  4. AMIODARONE [Concomitant]
  5. SODIUM BICARBONATE [Concomitant]
  6. ALBUTEROL [Concomitant]
  7. MULTIVITAMIN WITH MINERALS [Concomitant]
  8. LACTOBACILLUS [Concomitant]
  9. FERROUS SULFATE TAB [Concomitant]
  10. DIGOXIN [Concomitant]
  11. INSULIN [Concomitant]
  12. SIMVASTATIN [Concomitant]
  13. EPOGEN [Concomitant]
  14. PREDNISOLONE ACETATE OPHTHALMIC [Concomitant]

REACTIONS (2)
  - HAEMATEMESIS [None]
  - INTERNATIONAL NORMALISED RATIO INCREASED [None]
